FAERS Safety Report 20774695 (Version 1)
Quarter: 2022Q2

REPORT INFORMATION
  Report Type: Spontaneous
  Country: US (occurrence: US)
  Receive Date: 20220502
  Receipt Date: 20220502
  Transmission Date: 20220721
  Serious: No
  Sender: FDA-Public Use
  Company Number: US-ABBVIE-21K-163-4151390-00

PATIENT
  Sex: Female
  Weight: 49.940 kg

DRUGS (2)
  1. CREON [Suspect]
     Active Substance: PANCRELIPASE AMYLASE\PANCRELIPASE LIPASE\PANCRELIPASE PROTEASE
     Indication: Pancreatic failure
     Route: 048
     Dates: start: 20210913
  2. PANTOPRAZOLE [Concomitant]
     Active Substance: PANTOPRAZOLE
     Indication: Product used for unknown indication

REACTIONS (15)
  - Muscle spasms [Unknown]
  - Illness [Unknown]
  - Feeding disorder [Unknown]
  - Osteoporosis [Unknown]
  - Gastrooesophageal reflux disease [Unknown]
  - Dolichocolon [Unknown]
  - Autoimmune thyroiditis [Unknown]
  - Weight decreased [Unknown]
  - Chronic gastritis [Unknown]
  - Gastrointestinal disorder [Unknown]
  - Diarrhoea [Unknown]
  - Unevaluable event [Unknown]
  - Adverse drug reaction [Unknown]
  - Flatulence [Unknown]
  - Nausea [Unknown]

NARRATIVE: CASE EVENT DATE: 20210101
